FAERS Safety Report 9197864 (Version 3)
Quarter: 2013Q2

REPORT INFORMATION
  Report Type: Spontaneous
  Country: AU (occurrence: AU)
  Receive Date: 20130328
  Receipt Date: 20130417
  Transmission Date: 20140414
  Serious: Yes (Hospitalization, Disabling)
  Sender: FDA-Public Use
  Company Number: AU-BAXTER-2013BAX010970

PATIENT
  Age: 73 Year
  Sex: Male

DRUGS (3)
  1. KIOVIG NORMAL IMMUNOGLOBULIN (HUMAN) 5G/50ML FOR INTRAVENOUS USE INJEC [Suspect]
     Indication: INCLUSION BODY MYOSITIS
     Dosage: 27 GRAMS/DAY FOR 5 DAYS
     Route: 042
     Dates: start: 20120926, end: 20120930
  2. KIOVIG NORMAL IMMUNOGLOBULIN (HUMAN) 5G/50ML FOR INTRAVENOUS USE INJEC [Suspect]
     Indication: OFF LABEL USE
     Route: 042
     Dates: start: 20121120, end: 20121120
  3. KIOVIG NORMAL IMMUNOGLOBULIN (HUMAN) 5G/50ML FOR INTRAVENOUS USE INJEC [Suspect]
     Dosage: 27 GRAMS/DAY FOR 5 DAYS
     Route: 042
     Dates: start: 201210

REACTIONS (2)
  - Rash pruritic [Unknown]
  - Rash generalised [Unknown]
